FAERS Safety Report 19752660 (Version 2)
Quarter: 2021Q3

REPORT INFORMATION
  Report Type: Report from Study
  Country: US (occurrence: US)
  Receive Date: 20210827
  Receipt Date: 20210916
  Transmission Date: 20211014
  Serious: Yes (Hospitalization, Other)
  Sender: FDA-Public Use
  Company Number: US-ALNYLAM PHARMACEUTICALS, INC.-ALN-2021-002093

PATIENT

DRUGS (1)
  1. GIVLAARI [Suspect]
     Active Substance: GIVOSIRAN SODIUM
     Indication: PORPHYRIA ACUTE
     Dosage: 2.5 MILLIGRAM/KILOGRAM, MONTHLY
     Route: 058
     Dates: start: 20201015

REACTIONS (13)
  - Major depression [Unknown]
  - Transaminases increased [Not Recovered/Not Resolved]
  - Psychotic behaviour [Unknown]
  - Agitation [Recovering/Resolving]
  - Incorrect dose administered [Unknown]
  - Bipolar disorder [Unknown]
  - Abdominal pain [Recovered/Resolved]
  - Porphyria acute [Unknown]
  - Drug ineffective [Unknown]
  - Stress at work [Unknown]
  - Porphyria acute [Recovering/Resolving]
  - Injury [Recovering/Resolving]
  - Weight decreased [Unknown]

NARRATIVE: CASE EVENT DATE: 20210701
